FAERS Safety Report 6431368-2 (Version None)
Quarter: 2009Q4

REPORT INFORMATION
  Report Type: 
  Country: None (occurrence: None)
  Receive Date: 20091106
  Receipt Date: 20091023
  Transmission Date: 20100525
  Serious: Yes (Other)
  Sender: FDA-Public Use
  Company Number: PHHY2009JP46498

PATIENT
  Sex: Female

DRUGS (4)
  1. AMN107 AMN+CAP [Suspect]
     Indication: CHRONIC MYELOID LEUKAEMIA
     Dosage: 400MG DAILY
     Route: 048
     Dates: start: 20090710, end: 20090804
  2. OMEPRAL [Suspect]
     Indication: PROPHYLAXIS
     Dosage: 20 MG DAILY
     Route: 048
     Dates: start: 20090708
  3. NEUTROGIN [Suspect]
     Indication: PANCYTOPENIA
     Dosage: 100 ?G DAILY
     Route: 042
     Dates: start: 20090709, end: 20090713
  4. BAKTAR [Concomitant]
     Indication: PROPHYLAXIS
     Dosage: 4 DF, UNK
     Route: 048
     Dates: start: 20090803, end: 20090811

REACTIONS (10)
  - ANAEMIA [None]
  - BASOPHIL COUNT INCREASED [None]
  - ELECTROCARDIOGRAM QT PROLONGED [None]
  - HYPOGLYCAEMIA [None]
  - HYPOKALAEMIA [None]
  - HYPOMAGNESAEMIA [None]
  - LYMPHOPENIA [None]
  - NEUTROPHIL COUNT INCREASED [None]
  - THROMBOCYTOPENIA [None]
  - WHITE BLOOD CELL COUNT INCREASED [None]
